FAERS Safety Report 7271821-5 (Version None)
Quarter: 2011Q1

REPORT INFORMATION
  Report Type: 
  Country: None (occurrence: None)
  Receive Date: 20110131
  Receipt Date: 20110131
  Transmission Date: 20110831
  Serious: No
  Sender: FDA-Public Use
  Company Number: None

PATIENT
  Age: 60 Year
  Sex: Female
  Weight: 51.2565 kg

DRUGS (5)
  1. ZOLPIDEM [Suspect]
     Indication: FIBROMYALGIA
     Dosage: 1 BEDTIME PO
     Route: 048
  2. ZOLPIDEM [Suspect]
     Indication: SLEEP DISORDER
     Dosage: 1 BEDTIME PO
     Route: 048
  3. MIRTAZAPINE [Suspect]
     Indication: ANXIETY
     Dosage: 1 BEDTIME PO
     Route: 048
  4. MIRTAZAPINE [Suspect]
     Indication: SLEEP DISORDER
     Dosage: 1 BEDTIME PO
     Route: 048
  5. MIRTAZAPINE [Suspect]
     Indication: FIBROMYALGIA
     Dosage: 1 BEDTIME PO
     Route: 048

REACTIONS (2)
  - INSOMNIA [None]
  - PRODUCT SUBSTITUTION ISSUE [None]
